FAERS Safety Report 9064299 (Version 1)
Quarter: 2013Q1

REPORT INFORMATION
  Report Type: Report from Study
  Country: US (occurrence: US)
  Receive Date: 20130131
  Receipt Date: 20130131
  Transmission Date: 20140127
  Serious: No
  Sender: FDA-Public Use
  Company Number: US-ABBOTT-12P-163-1022302-00

PATIENT
  Age: 25 Year
  Sex: Female

DRUGS (2)
  1. HUMIRA [Suspect]
     Indication: COLITIS ULCERATIVE
     Dosage: DAY 1
     Dates: start: 201210
  2. HUMIRA [Suspect]

REACTIONS (2)
  - Toothache [Not Recovered/Not Resolved]
  - Headache [Not Recovered/Not Resolved]
